FAERS Safety Report 6310725-9 (Version None)
Quarter: 2009Q3

REPORT INFORMATION
  Report Type: 
  Country: None (occurrence: None)
  Receive Date: 20090814
  Receipt Date: 20090811
  Transmission Date: 20100115
  Serious: Yes (Other)
  Sender: FDA-Public Use
  Company Number: CH-GILEAD-2009-0023589

PATIENT
  Age: 54 Year
  Sex: Male

DRUGS (2)
  1. TRUVADA [Suspect]
     Indication: HIV INFECTION
     Route: 048
     Dates: start: 20020101
  2. VIRAMUNE [Suspect]
     Indication: HIV INFECTION
     Route: 048

REACTIONS (2)
  - COPPER METABOLISM DISORDER [None]
  - HEPATITIS B [None]
